FAERS Safety Report 21337395 (Version 1)
Quarter: 2022Q3

REPORT INFORMATION
  Report Type: Spontaneous
  Country: JP (occurrence: JP)
  Receive Date: 20220915
  Receipt Date: 20220915
  Transmission Date: 20221027
  Serious: Yes (Hospitalization)
  Sender: FDA-Public Use
  Company Number: JP-JNJFOC-20211059165

PATIENT
  Age: 82 Year
  Sex: Female

DRUGS (1)
  1. FENTANYL [Suspect]
     Active Substance: FENTANYL
     Indication: Pain
     Dosage: FENTANYL:2.1MG
     Route: 062

REACTIONS (2)
  - Cardiac disorder [Recovered/Resolved]
  - Pneumonia [Recovered/Resolved]
